FAERS Safety Report 10473754 (Version 1)
Quarter: 2014Q3

REPORT INFORMATION
  Report Type: Spontaneous
  Country: DE (occurrence: None)
  Receive Date: 20140922
  Receipt Date: 20140922
  Transmission Date: 20150326
  Serious: Yes (Congenital Anomaly)
  Sender: FDA-Public Use
  Company Number: VAL_03375_2014

PATIENT
  Age: 1 Day
  Sex: Male
  Weight: .9 kg

DRUGS (9)
  1. METHYLDOPA. [Concomitant]
     Active Substance: METHYLDOPA
  2. NEPRESOL [Concomitant]
     Active Substance: DIHYDRALAZINE SULFATE
  3. THYROXIN [Concomitant]
     Active Substance: LEVOTHYROXINE
  4. DIAZEPAM. [Concomitant]
     Active Substance: DIAZEPAM
  5. METOPROLOL (METOPROLOL - METOPROLOL TARTRATE) [Suspect]
     Active Substance: METOPROLOL
     Indication: MATERNAL EXPOSURE TIMING UNSPECIFIED
     Dosage: 0 TO 25.2 GESTATIONAL WEEKS
     Route: 064
     Dates: start: 20121206, end: 20130601
  6. VALSARTAN (VALSARTAN) [Suspect]
     Active Substance: VALSARTAN
     Indication: MATERNAL EXPOSURE TIMING UNSPECIFIED
     Dosage: 0 TO 13.4 GESTATIONAL WEEKS
     Route: 064
     Dates: start: 20120306, end: 20130311
  7. HYDROCHLOROTHIAZIDE (HYDROCHLOROTHIAZIDE) [Suspect]
     Active Substance: HYDROCHLOROTHIAZIDE
     Indication: MATERNAL EXPOSURE TIMING UNSPECIFIED
     Dosage: 0 TO 14 GESTATIONAL WEEKS
     Route: 064
     Dates: start: 20121206, end: 20130314
  8. FOLIO [Concomitant]
     Active Substance: FOLIC ACID
  9. NOVORAPID [Concomitant]
     Active Substance: INSULIN ASPART

REACTIONS (9)
  - Maternal drugs affecting foetus [None]
  - Pulmonary valve stenosis [None]
  - Ventricular septal defect [None]
  - Atrial septal defect [None]
  - Hypoacusis [None]
  - Caesarean section [None]
  - Premature baby [None]
  - Ductus arteriosus stenosis foetal [None]
  - Hypospadias [None]
